FAERS Safety Report 12180793 (Version 3)
Quarter: 2017Q2

REPORT INFORMATION
  Report Type: Spontaneous
  Country: US (occurrence: US)
  Receive Date: 20160315
  Receipt Date: 20170517
  Transmission Date: 20170830
  Serious: No
  Sender: FDA-Public Use
  Company Number: US-PFIZER INC-2016114156

PATIENT
  Age: 61 Year
  Sex: Female
  Weight: 84 kg

DRUGS (12)
  1. LYRICA [Suspect]
     Active Substance: PREGABALIN
     Indication: NERVE INJURY
     Dosage: UNK
     Dates: end: 201602
  2. TEGRETOL [Concomitant]
     Active Substance: CARBAMAZEPINE
     Dosage: 200 MG, 3X/DAY
     Route: 048
     Dates: start: 20170130
  3. MOTRIN [Concomitant]
     Active Substance: IBUPROFEN
     Indication: PAIN
     Dosage: 800 MG, AS NEEDED (EVERY 8 HOURS)
     Route: 048
  4. VITAMIN D2 [Concomitant]
     Active Substance: ERGOCALCIFEROL
     Dosage: 50000 IU, UNK
     Route: 048
  5. ZOCOR [Concomitant]
     Active Substance: SIMVASTATIN
     Dosage: 20 MG, DAILY (LATE)
     Route: 048
  6. LYRICA [Suspect]
     Active Substance: PREGABALIN
     Indication: JAW DISORDER
     Dosage: 150 MG, 3X/DAY (DAILY)
     Route: 048
     Dates: start: 20170121, end: 20170302
  7. ULTRAM [Concomitant]
     Active Substance: TRAMADOL HYDROCHLORIDE
     Dosage: UNK, 3X/DAY(TAKE 1 TO 2 TABLET 3 TIMES A DAY)
     Route: 048
     Dates: start: 20170209
  8. ELAVIL [Concomitant]
     Active Substance: AMITRIPTYLINE HYDROCHLORIDE
     Dosage: 10 MG, 1X/DAY (DAILY AT BEDTIME)
     Route: 048
  9. LIORESAL [Concomitant]
     Active Substance: BACLOFEN
     Dosage: 10 MG, 2X/DAY
     Route: 048
     Dates: start: 20170119
  10. LYRICA [Suspect]
     Active Substance: PREGABALIN
     Dosage: 150 MG, 3X/DAY (DAILY)
     Route: 048
     Dates: start: 20170302
  11. COPAXONE [Concomitant]
     Active Substance: GLATIRAMER ACETATE
     Dosage: 40 MG/ML, ALTERNATE DAY (EVERY OTHER DAY)
     Route: 058
  12. TOPAMAX [Concomitant]
     Active Substance: TOPIRAMATE
     Dosage: 50 MG, DAILY(1 TO 2 TABLETS 3 TIMES A DAY)
     Route: 048
     Dates: start: 20170117

REACTIONS (4)
  - Eating disorder [Unknown]
  - Insomnia [Unknown]
  - Abdominal pain upper [Unknown]
  - Pain [Unknown]
